FAERS Safety Report 18097643 (Version 1)
Quarter: 2020Q3

REPORT INFORMATION
  Report Type: Spontaneous
  Country: US (occurrence: US)
  Receive Date: 20200731
  Receipt Date: 20200731
  Transmission Date: 20201103
  Serious: Yes (Disabling)
  Sender: FDA-Public Use
  Company Number: None

PATIENT
  Age: 48 Year
  Sex: Male
  Weight: 83.25 kg

DRUGS (2)
  1. BUPRENORPHIN AND NALOXONE SUBLINGUAL FILM 2MG/0.5MG [Suspect]
     Active Substance: BUPRENORPHINE HYDROCHLORIDE\NALOXONE HYDROCHLORIDE
     Indication: DRUG DEPENDENCE
     Dosage: ?          QUANTITY:1 SUBLINGUAL FILM;?
     Route: 060
  2. MOTRIN [Concomitant]
     Active Substance: IBUPROFEN

REACTIONS (5)
  - Drug ineffective [None]
  - Drug withdrawal syndrome [None]
  - Suspected product quality issue [None]
  - Product solubility abnormal [None]
  - Product substitution issue [None]

NARRATIVE: CASE EVENT DATE: 20200706
